FAERS Safety Report 16301955 (Version 1)
Quarter: 2019Q2

REPORT INFORMATION
  Report Type: Spontaneous
  Country: US (occurrence: US)
  Receive Date: 20190512
  Receipt Date: 20190512
  Transmission Date: 20190711
  Serious: Yes (Other)
  Sender: FDA-Public Use
  Company Number: PHEH2019US019062

PATIENT
  Sex: Male

DRUGS (1)
  1. TAFINLAR [Suspect]
     Active Substance: DABRAFENIB MESYLATE
     Indication: ANAPLASTIC THYROID CANCER
     Dosage: 150 MG, BID
     Route: 048
     Dates: start: 20190404, end: 20190430

REACTIONS (4)
  - Malignant neoplasm progression [Unknown]
  - Anaplastic thyroid cancer [Unknown]
  - Product use in unapproved indication [Unknown]
  - Leukopenia [Unknown]
